FAERS Safety Report 4330669-1 (Version None)
Quarter: 2004Q2

REPORT INFORMATION
  Report Type: 
  Country: None (occurrence: None)
  Receive Date: 20040402
  Receipt Date: 20040329
  Transmission Date: 20050107
  Serious: Yes (Other)
  Sender: FDA-Public Use
  Company Number: FR-GLAXOSMITHKLINE-B0328536A

PATIENT
  Age: 41 Year
  Sex: Female

DRUGS (6)
  1. ZYBAN [Suspect]
     Indication: EX-SMOKER
     Dosage: 150MG UNKNOWN
     Route: 048
     Dates: start: 20030901, end: 20030901
  2. FONCITRIL 4000 [Concomitant]
     Route: 065
  3. OROCAL [Concomitant]
     Route: 065
  4. SULFARLEM [Concomitant]
     Route: 065
  5. IMOVANE [Concomitant]
     Route: 065
  6. ASPIRIN [Concomitant]

REACTIONS (9)
  - ANTINUCLEAR ANTIBODY POSITIVE [None]
  - ARTHRALGIA [None]
  - DRUG TOXICITY [None]
  - EPIDERMAL NECROSIS [None]
  - INFLAMMATION [None]
  - PHOTOSENSITIVE RASH [None]
  - RASH ERYTHEMATOUS [None]
  - SYSTEMIC LUPUS ERYTHEMATOSUS [None]
  - TOXIC SKIN ERUPTION [None]
